FAERS Safety Report 25157728 (Version 1)
Quarter: 2025Q2

REPORT INFORMATION
  Report Type: Spontaneous
  Country: ID (occurrence: ID)
  Receive Date: 20250403
  Receipt Date: 20250403
  Transmission Date: 20250716
  Serious: Yes (Hospitalization)
  Sender: PRINSTON PHARMACEUTICAL
  Company Number: ID-PRINSTON PHARMACEUTICAL INC.-2025PRN00099

PATIENT
  Age: 33 Year
  Sex: Female

DRUGS (1)
  1. DONEPEZIL HYDROCHLORIDE [Suspect]
     Active Substance: DONEPEZIL HYDROCHLORIDE
     Indication: Dementia

REACTIONS (3)
  - Bradyarrhythmia [Not Recovered/Not Resolved]
  - Atrial fibrillation [Recovered/Resolved]
  - Hypokalaemia [Recovered/Resolved]
